FAERS Safety Report 5310934-1 (Version None)
Quarter: 2007Q2

REPORT INFORMATION
  Report Type: 
  Country: None (occurrence: None)
  Receive Date: 20070426
  Receipt Date: 20070426
  Transmission Date: 20071010
  Serious: Yes (Other)
  Sender: FDA-Public Use
  Company Number: None

PATIENT
  Age: 82 Year
  Sex: Male
  Weight: 51.4 kg

DRUGS (13)
  1. PIPERACILLIN AND TAZOBACTAM [Suspect]
     Indication: PNEUMONIA ASPIRATION
     Dosage: 3.375GRAM Q 6HR IV
     Route: 042
     Dates: start: 20061103, end: 20061116
  2. VANCOMYCIN [Suspect]
     Indication: PNEUMONIA ASPIRATION
     Dosage: 1000MG IV Q 24HR
     Route: 042
     Dates: start: 20061104, end: 20061116
  3. ACETAMINOPHEN/OXYCODONE TAB [Concomitant]
  4. FUROSEMIDE INJ, SOLN [Concomitant]
  5. HEPARIN [Concomitant]
  6. INSULIN HUMAN NPH INJ [Concomitant]
  7. INSULIN HUMAN REGULAR INJ [Concomitant]
  8. METOPROLOL TAB [Concomitant]
  9. METRONIDAZOLE [Concomitant]
  10. NYSTATIN [Concomitant]
  11. PIPERACILLIN/TAZOBACTAM INJ [Concomitant]
  12. VANCOMYCIN INJ PRE-MIX [Concomitant]
  13. MOXIFLOXACIN HCL [Concomitant]

REACTIONS (4)
  - EMPYEMA [None]
  - RASH ERYTHEMATOUS [None]
  - RASH MACULAR [None]
  - RASH PRURITIC [None]
